FAERS Safety Report 6306001-0 (Version None)
Quarter: 2009Q3

REPORT INFORMATION
  Report Type: 
  Country: None (occurrence: None)
  Receive Date: 20090810
  Receipt Date: 20090810
  Transmission Date: 20100115
  Serious: No
  Sender: FDA-Public Use
  Company Number: None

PATIENT
  Sex: Female
  Weight: 48.5 kg

DRUGS (4)
  1. FLUOROURACIL [Suspect]
     Dosage: 2400 MG
  2. BEVACIZUMAB (RHUMAB VEGF) [Suspect]
     Dosage: 5 MG
  3. LEUCOVORIN CALCIUM [Suspect]
     Dosage: 400 MG
  4. ELOXATIN [Suspect]
     Dosage: 85 MG

REACTIONS (2)
  - NEUROPATHY PERIPHERAL [None]
  - NEUROTOXICITY [None]
